FAERS Safety Report 6533008-0 (Version None)
Quarter: 2010Q1

REPORT INFORMATION
  Report Type: 
  Country: None (occurrence: None)
  Receive Date: 20100111
  Receipt Date: 20100104
  Transmission Date: 20100710
  Serious: Yes (Hospitalization, Other)
  Sender: FDA-Public Use
  Company Number: AU-BRISTOL-MYERS SQUIBB COMPANY-14920441

PATIENT
  Age: 70 Year
  Sex: Female

DRUGS (3)
  1. CARBOPLATIN [Suspect]
     Indication: LUNG CANCER METASTATIC
  2. PACLITAXEL [Suspect]
     Indication: LUNG CANCER METASTATIC
  3. BEVACIZUMAB [Suspect]
     Indication: LUNG CANCER METASTATIC
     Route: 042

REACTIONS (4)
  - HYPERTENSION [None]
  - PARAESTHESIA [None]
  - QUADRIPARESIS [None]
  - SPINAL CORD INFARCTION [None]
